FAERS Safety Report 17409728 (Version 1)
Quarter: 2020Q1

REPORT INFORMATION
  Report Type: Spontaneous
  Country: CA (occurrence: CA)
  Receive Date: 20200212
  Receipt Date: 20200212
  Transmission Date: 20200409
  Serious: Yes (Other)
  Sender: FDA-Public Use
  Company Number: CA-ALLERGAN-2005498US

PATIENT

DRUGS (1)
  1. MESALAZINE UNK [Suspect]
     Active Substance: MESALAMINE
     Indication: PRODUCT USED FOR UNKNOWN INDICATION
     Dosage: 1 EVERY 1 DAYS
     Route: 048

REACTIONS (3)
  - Gastritis erosive [Unknown]
  - Drug ineffective [Unknown]
  - Off label use [Unknown]
